FAERS Safety Report 8058641-9 (Version None)
Quarter: 2012Q1

REPORT INFORMATION
  Report Type: 
  Country: None (occurrence: None)
  Receive Date: 20120120
  Receipt Date: 20120111
  Transmission Date: 20120608
  Serious: Yes (Hospitalization)
  Sender: FDA-Public Use
  Company Number: GB-BRISTOL-MYERS SQUIBB COMPANY-16248221

PATIENT
  Age: 61 Year
  Sex: Male

DRUGS (9)
  1. AMLODIPINE [Concomitant]
     Route: 048
  2. PREGABALIN [Concomitant]
     Route: 048
  3. FERROUS FUMARATE [Concomitant]
     Route: 048
  4. ABILIFY [Suspect]
     Route: 048
  5. BISOPROLOL FUMARATE [Concomitant]
     Route: 048
  6. SERTRALINE HYDROCHLORIDE [Concomitant]
     Route: 048
  7. CLOPIDOGREL BISULFATE [Concomitant]
     Route: 048
  8. DOXAZOSIN MESYLATE [Concomitant]
     Route: 048
  9. ATORVASTATIN [Concomitant]
     Dosage: AT NIGHT
     Route: 048

REACTIONS (2)
  - FALL [None]
  - BALANCE DISORDER [None]
